FAERS Safety Report 17872477 (Version 1)
Quarter: 2020Q2

REPORT INFORMATION
  Report Type: Spontaneous
  Country: US (occurrence: US)
  Receive Date: 20200608
  Receipt Date: 20200608
  Transmission Date: 20200714
  Serious: Yes (Other)
  Sender: FDA-Public Use
  Company Number: US-NOVOPROD-731897

PATIENT
  Age: 43 Year
  Sex: Female

DRUGS (2)
  1. NOVOLOG [Suspect]
     Active Substance: INSULIN ASPART
     Indication: GESTATIONAL DIABETES
     Dosage: UNK
     Route: 058
  2. NOVOLIN 70/30 [Suspect]
     Active Substance: INSULIN HUMAN
     Indication: GESTATIONAL DIABETES
     Dosage: UNK
     Route: 058

REACTIONS (5)
  - Maternal exposure during pregnancy [Recovered/Resolved]
  - Hypoglycaemic unconsciousness [Unknown]
  - Peripheral swelling [Unknown]
  - Premature delivery [Recovered/Resolved]
  - High risk pregnancy [Recovered/Resolved]
